FAERS Safety Report 6804313-5 (Version None)
Quarter: 2010Q2

REPORT INFORMATION
  Report Type: 
  Country: None (occurrence: None)
  Receive Date: 20100628
  Receipt Date: 20070313
  Transmission Date: 20101027
  Serious: No
  Sender: FDA-Public Use
  Company Number: US-PFIZER INC-2007020117

PATIENT
  Sex: Male
  Weight: 98.88 kg

DRUGS (8)
  1. CADUET [Suspect]
     Indication: BLOOD CHOLESTEROL INCREASED
     Dosage: 5/20MG
     Dates: start: 20070308, end: 20070312
  2. CADUET [Suspect]
     Indication: HYPERTENSION
  3. NEXIUM [Concomitant]
  4. OXYCODONE HCL [Concomitant]
  5. AMBIEN [Concomitant]
  6. PROZAC [Concomitant]
  7. COZAAR [Concomitant]
  8. XANAX [Concomitant]

REACTIONS (4)
  - DIARRHOEA [None]
  - ERUCTATION [None]
  - FLATULENCE [None]
  - NAUSEA [None]
